FAERS Safety Report 8271285 (Version 2)
Quarter: 2012Q4

REPORT INFORMATION
  Report Type: 
  Country: ZA (occurrence: ZA)
  Receive Date: 20111201
  Receipt Date: 20120831
  Transmission Date: 20130627
  Serious: Yes (Death)
  Sender: FDA-Public Use
  Company Number: ZA-ELI_LILLY_AND_COMPANY-ZA201111008533

PATIENT
  Sex: Male

DRUGS (1)
  1. CIALIS [Suspect]
     Indication: ERECTILE DYSFUNCTION
     Dosage: 5 mg, UNK
     Route: 048

REACTIONS (2)
  - Gun shot wound [Fatal]
  - Injury [None]
